FAERS Safety Report 7087785-3 (Version None)
Quarter: 2010Q4

REPORT INFORMATION
  Report Type: 
  Country: None (occurrence: None)
  Receive Date: 20101108
  Receipt Date: 20101029
  Transmission Date: 20110411
  Serious: Yes (Other)
  Sender: FDA-Public Use
  Company Number: US-US-EMD SERONO, INC.-7022608

PATIENT
  Sex: Female
  Weight: 80 kg

DRUGS (4)
  1. REBIF [Suspect]
     Indication: PRODUCT USED FOR UNKNOWN INDICATION
     Dates: start: 20091025
  2. HORMONE THERAPY [Concomitant]
     Indication: HYSTERECTOMY
     Dates: start: 20070101
  3. ALEVE (CAPLET) [Concomitant]
     Indication: PREMEDICATION
  4. IBUPROFEN [Concomitant]
     Indication: PREMEDICATION

REACTIONS (3)
  - EYE HAEMORRHAGE [None]
  - RETINAL ISCHAEMIA [None]
  - RETINOPATHY [None]
